FAERS Safety Report 4675328-0 (Version None)
Quarter: 2005Q2

REPORT INFORMATION
  Report Type: 
  Country: None (occurrence: None)
  Receive Date: 20050527
  Receipt Date: 20050515
  Transmission Date: 20051028
  Serious: Yes (Death, Hospitalization)
  Sender: FDA-Public Use
  Company Number: GB-KINGPHARMUSA00001-K200500644

PATIENT
  Age: 70 Year
  Sex: Male

DRUGS (2)
  1. PROLOPRIM [Suspect]
     Indication: URINARY TRACT INFECTION
  2. INHALERS (UNSPECIFIED) [Concomitant]

REACTIONS (2)
  - CARDIAC ARREST [None]
  - TOXIC EPIDERMAL NECROLYSIS [None]
